FAERS Safety Report 8052447-2 (Version None)
Quarter: 2012Q1

REPORT INFORMATION
  Report Type: 
  Country: None (occurrence: None)
  Receive Date: 20120118
  Receipt Date: 20120110
  Transmission Date: 20120608
  Serious: Yes (Other)
  Sender: FDA-Public Use
  Company Number: US-PFIZER INC-2012008194

PATIENT
  Sex: Female

DRUGS (2)
  1. NEURONTIN [Suspect]
  2. CELEBREX [Suspect]

REACTIONS (3)
  - ACCIDENT [None]
  - SENSORY LOSS [None]
  - SPONDYLITIS [None]
